FAERS Safety Report 9477794 (Version 2)
Quarter: 2013Q3

REPORT INFORMATION
  Report Type: Report from Study
  Country: HU (occurrence: HU)
  Receive Date: 20130827
  Receipt Date: 20130827
  Transmission Date: 20140515
  Serious: Yes (Hospitalization)
  Sender: FDA-Public Use
  Company Number: HU-BRISTOL-MYERS SQUIBB COMPANY-16372278

PATIENT
  Age: 55 Year
  Sex: Male
  Weight: 62 kg

DRUGS (10)
  1. APIXABAN [Suspect]
     Indication: EMBOLISM
     Route: 048
     Dates: start: 20110811, end: 20120125
  2. PLACEBO [Suspect]
     Indication: EMBOLISM
     Dosage: APIX:11AUG11-25JAN2012:10MG,PO.?WARF:11AUG11-24JAN12:6MG,PO.?ENOX:11AUG11-15AUG11;12.8ML,SC.
     Dates: start: 20110811
  3. PERINDOPRIL [Concomitant]
     Dates: start: 201105
  4. HYDROCHLOROTHIAZIDE [Concomitant]
     Dates: start: 201105
  5. BISOPROLOL [Concomitant]
     Dates: start: 2007
  6. AMLODIPINE [Concomitant]
     Dates: start: 2007
  7. ALLOPURINOL [Concomitant]
     Dates: start: 201107
  8. ATORVASTATIN [Concomitant]
     Dates: start: 201107
  9. TRAMADOL [Concomitant]
     Dates: start: 20120126
  10. PARACETAMOL [Concomitant]
     Dates: start: 20120131, end: 20120210

REACTIONS (2)
  - Cerebral haemorrhage [Recovered/Resolved with Sequelae]
  - Peripheral arterial occlusive disease [Recovered/Resolved]
